FAERS Safety Report 14832337 (Version 1)
Quarter: 2018Q2

REPORT INFORMATION
  Report Type: Report from Study
  Country: US (occurrence: US)
  Receive Date: 20180501
  Receipt Date: 20180501
  Transmission Date: 20180711
  Serious: Yes (Other)
  Sender: FDA-Public Use
  Company Number: US-BAYER-2018-082609

PATIENT
  Sex: Male

DRUGS (1)
  1. MACROGOL 3350 [Suspect]
     Active Substance: POLYETHYLENE GLYCOL 3350

REACTIONS (3)
  - Nausea [None]
  - Autonomic dysreflexia [None]
  - Product preparation error [None]
